FAERS Safety Report 5212200-1 (Version None)
Quarter: 2006Q4

REPORT INFORMATION
  Report Type: 
  Country: None (occurrence: None)
  Receive Date: 20061120
  Receipt Date: 20060424
  Transmission Date: 20070319
  Serious: Yes (Other)
  Sender: FDA-Public Use
  Company Number: US-2006-009789

PATIENT
  Age: 64 Year
  Sex: Female

DRUGS (2)
  1. ULTRAVIST (PHARMACY BULK) [Suspect]
     Indication: ANGIOGRAM
     Dosage: 125 ML, 1 DOSE, INTRAVENOUS
     Route: 042
     Dates: start: 20060421, end: 20060421
  2. ANTIBIOTICS [Concomitant]

REACTIONS (4)
  - ANAPHYLACTOID REACTION [None]
  - BRONCHOSPASM [None]
  - FACE OEDEMA [None]
  - PERIORBITAL OEDEMA [None]
